FAERS Safety Report 9675785 (Version 1)
Quarter: 2013Q4

REPORT INFORMATION
  Report Type: Spontaneous
  Country: CH (occurrence: CH)
  Receive Date: 20131107
  Receipt Date: 20131107
  Transmission Date: 20140711
  Serious: Yes (Other)
  Sender: FDA-Public Use
  Company Number: CH-PFIZER INC-2013316699

PATIENT
  Age: 59 Year
  Sex: Male

DRUGS (5)
  1. CORDARONE [Suspect]
     Indication: ATRIAL FIBRILLATION
     Dosage: 200 MG, DAILY
     Route: 048
  2. CARVEDILOL [Interacting]
     Indication: ESSENTIAL HYPERTENSION
     Dosage: 50 MG, DAILY
     Route: 048
  3. XARELTO [Interacting]
     Indication: THROMBOPHLEBITIS
     Dosage: 15 MG, 2X/DAY
     Route: 048
     Dates: start: 20130709, end: 201307
  4. ZANIDIP [Concomitant]
     Dosage: UNK
  5. TEVETEN HCT [Concomitant]
     Dosage: UNK

REACTIONS (2)
  - Drug interaction [Unknown]
  - Haematuria [Recovered/Resolved]
